FAERS Safety Report 5863166-2 (Version None)
Quarter: 2008Q3

REPORT INFORMATION
  Report Type: 
  Country: None (occurrence: None)
  Receive Date: 20080828
  Receipt Date: 20080820
  Transmission Date: 20090109
  Serious: Yes (Death)
  Sender: FDA-Public Use
  Company Number: PHHO2008TR09205

PATIENT
  Sex: Male

DRUGS (1)
  1. TASIGNA [Suspect]
     Indication: ACUTE LEUKAEMIA
     Dosage: 400 MG, UNK
     Dates: start: 20080506, end: 20080714

REACTIONS (3)
  - CARDIO-RESPIRATORY ARREST [None]
  - NEUTROPENIA [None]
  - PYREXIA [None]
